FAERS Safety Report 4974433-9 (Version None)
Quarter: 2006Q2

REPORT INFORMATION
  Report Type: 
  Country: None (occurrence: None)
  Receive Date: 20060417
  Receipt Date: 20060407
  Transmission Date: 20061013
  Serious: Yes (Death, Hospitalization, Other)
  Sender: FDA-Public Use
  Company Number: DE-ABBOTT-06P-062-0330303-00

PATIENT
  Age: 39 Year
  Sex: Female

DRUGS (5)
  1. SEVORANE LIQUID FOR INHALATION [Suspect]
     Indication: INDUCTION OF ANAESTHESIA
     Route: 055
  2. REDUCTIL [Suspect]
     Indication: OBESITY
     Route: 048
  3. REDUCTIL [Suspect]
     Indication: WEIGHT CONTROL
  4. PROPOFOL [Suspect]
     Indication: ANAESTHESIA
     Route: 042
  5. UNKNOWN DRUG [Concomitant]
     Indication: DRUG USE FOR UNKNOWN INDICATION

REACTIONS (5)
  - DRUG TOXICITY [None]
  - HYPERSENSITIVITY [None]
  - MULTI-ORGAN FAILURE [None]
  - PULMONARY OEDEMA [None]
  - PYREXIA [None]
